FAERS Safety Report 6709166-1 (Version None)
Quarter: 2010Q2

REPORT INFORMATION
  Report Type: 
  Country: None (occurrence: None)
  Receive Date: 20100504
  Receipt Date: 20100421
  Transmission Date: 20101027
  Serious: Yes (Death, Hospitalization)
  Sender: FDA-Public Use
  Company Number: FR-GENZYME-CLOF-1000937

PATIENT

DRUGS (1)
  1. EVOLTRA [Suspect]
     Indication: ACUTE LEUKAEMIA
     Dosage: 5 MG/M2, QDX5
     Route: 065
     Dates: start: 20100208, end: 20100212

REACTIONS (2)
  - CARDIAC ARREST [None]
  - ORGANISING PNEUMONIA [None]
